FAERS Safety Report 21577400 (Version 2)
Quarter: 2022Q4

REPORT INFORMATION
  Report Type: Report from Study
  Country: JP (occurrence: JP)
  Receive Date: 20221110
  Receipt Date: 20221206
  Transmission Date: 20230112
  Serious: No
  Sender: FDA-Public Use
  Company Number: JP-ASTELLAS-2022JP016377

PATIENT
  Age: 78 Year
  Sex: Male
  Weight: 47 kg

DRUGS (3)
  1. ENFORTUMAB VEDOTIN [Suspect]
     Active Substance: ENFORTUMAB VEDOTIN
     Indication: Malignant neoplasm of renal pelvis
     Dosage: 1.25 MG/KG, 3 TIMES A MONTH
     Route: 041
     Dates: start: 20211221
  2. ENFORTUMAB VEDOTIN [Suspect]
     Active Substance: ENFORTUMAB VEDOTIN
     Indication: Bladder transitional cell carcinoma metastatic
     Dosage: 1.25 MG/KG, 3 TIMES A MONTH
     Route: 041
     Dates: start: 20220216, end: 20220216
  3. ENFORTUMAB VEDOTIN [Suspect]
     Active Substance: ENFORTUMAB VEDOTIN
     Dosage: 1.25 MG/KG, 3 TIMES A MONTH
     Route: 041
     Dates: start: 20220316, end: 202206

REACTIONS (2)
  - Hyperglycaemia [Not Recovered/Not Resolved]
  - Taste disorder [Unknown]

NARRATIVE: CASE EVENT DATE: 20220104
